FAERS Safety Report 18043068 (Version 1)
Quarter: 2020Q3

REPORT INFORMATION
  Report Type: Other
  Country: CA (occurrence: CA)
  Receive Date: 20200720
  Receipt Date: 20200720
  Transmission Date: 20201103
  Serious: Yes (Hospitalization, Other)
  Sender: FDA-Public Use
  Company Number: CA-ACCORD-190113

PATIENT
  Age: 50 Year
  Sex: Female

DRUGS (40)
  1. ETANERCEPT [Interacting]
     Active Substance: ETANERCEPT
     Indication: COMPLEX REGIONAL PAIN SYNDROME
     Route: 065
  2. HYDROXYCHLOROQUINE [Interacting]
     Active Substance: HYDROXYCHLOROQUINE
     Indication: COMPLEX REGIONAL PAIN SYNDROME
     Route: 065
  3. KETAMINE [Interacting]
     Active Substance: KETAMINE
     Indication: COMPLEX REGIONAL PAIN SYNDROME
     Route: 061
  4. MYCOPHENOLIC ACID. [Interacting]
     Active Substance: MYCOPHENOLIC ACID
     Indication: COMPLEX REGIONAL PAIN SYNDROME
     Route: 065
  5. SPIRONOLACTONE. [Interacting]
     Active Substance: SPIRONOLACTONE
     Indication: COMPLEX REGIONAL PAIN SYNDROME
     Route: 065
  6. APREMILAST [Interacting]
     Active Substance: APREMILAST
     Indication: COMPLEX REGIONAL PAIN SYNDROME
     Route: 065
  7. DILTIAZEM. [Interacting]
     Active Substance: DILTIAZEM
     Indication: COMPLEX REGIONAL PAIN SYNDROME
     Dosage: NOT SPECIFIED
     Route: 065
  8. PREDNISONE. [Interacting]
     Active Substance: PREDNISONE
     Indication: COMPLEX REGIONAL PAIN SYNDROME
     Route: 065
  9. KETAMINE [Interacting]
     Active Substance: KETAMINE
     Indication: COMPLEX REGIONAL PAIN SYNDROME
     Route: 048
  10. BUMETANIDE. [Interacting]
     Active Substance: BUMETANIDE
     Indication: COMPLEX REGIONAL PAIN SYNDROME
     Route: 065
  11. CAPSAICIN. [Interacting]
     Active Substance: CAPSAICIN
     Indication: COMPLEX REGIONAL PAIN SYNDROME
     Route: 061
  12. CIMETIDINE [Interacting]
     Active Substance: CIMETIDINE
     Indication: COMPLEX REGIONAL PAIN SYNDROME
     Dosage: NOT SPECIFIED
     Route: 065
  13. CLONIDINE. [Interacting]
     Active Substance: CLONIDINE
     Indication: COMPLEX REGIONAL PAIN SYNDROME
     Dosage: NOT SPECIFIED
     Route: 065
  14. MAGNESIUM HYDROXIDE. [Interacting]
     Active Substance: MAGNESIUM HYDROXIDE
     Indication: COMPLEX REGIONAL PAIN SYNDROME
     Route: 065
  15. NALTREXONE [Interacting]
     Active Substance: NALTREXONE
     Indication: COMPLEX REGIONAL PAIN SYNDROME
     Dosage: 1 EVERY 24 HOURS
     Route: 065
  16. CALCITONIN [Concomitant]
     Active Substance: CALCITONIN
     Indication: COMPLEX REGIONAL PAIN SYNDROME
     Dosage: NOT SPECIFIED
     Route: 065
  17. PREGABALIN. [Interacting]
     Active Substance: PREGABALIN
     Indication: COMPLEX REGIONAL PAIN SYNDROME
     Route: 065
  18. ANAKINRA [Interacting]
     Active Substance: ANAKINRA
     Indication: COMPLEX REGIONAL PAIN SYNDROME
     Route: 065
  19. METOPROLOL. [Interacting]
     Active Substance: METOPROLOL
     Indication: COMPLEX REGIONAL PAIN SYNDROME
     Route: 065
  20. ACETYLCYSTEINE. [Interacting]
     Active Substance: ACETYLCYSTEINE
     Indication: COMPLEX REGIONAL PAIN SYNDROME
     Route: 065
  21. PREDNISONE. [Interacting]
     Active Substance: PREDNISONE
     Indication: COMPLEX REGIONAL PAIN SYNDROME
     Route: 065
  22. PREDNISONE. [Interacting]
     Active Substance: PREDNISONE
     Indication: COMPLEX REGIONAL PAIN SYNDROME
     Dosage: 1 EVERY 24 HOURS
     Route: 065
  23. AMLODIPINE [Interacting]
     Active Substance: AMLODIPINE BESYLATE
     Indication: COMPLEX REGIONAL PAIN SYNDROME
     Route: 065
  24. MONTELUKAST [Interacting]
     Active Substance: MONTELUKAST SODIUM
     Indication: COMPLEX REGIONAL PAIN SYNDROME
     Dosage: NOT SPECIFIED
     Route: 065
  25. LITHIUM. [Interacting]
     Active Substance: LITHIUM
     Indication: COMPLEX REGIONAL PAIN SYNDROME
     Dosage: NOT SPECIFIED
     Route: 065
  26. MEMANTINE/MEMANTINE HYDROCHLORIDE [Interacting]
     Active Substance: MEMANTINE HYDROCHLORIDE
     Indication: COMPLEX REGIONAL PAIN SYNDROME
     Route: 065
  27. MEXILETINE [Interacting]
     Active Substance: MEXILETINE
     Indication: COMPLEX REGIONAL PAIN SYNDROME
     Route: 065
  28. AMITRIPTYLINE [Suspect]
     Active Substance: AMITRIPTYLINE
     Indication: COMPLEX REGIONAL PAIN SYNDROME
     Route: 065
  29. LIDOCAINE. [Interacting]
     Active Substance: LIDOCAINE
     Indication: COMPLEX REGIONAL PAIN SYNDROME
     Route: 042
  30. PENTOXIFYLLINE. [Interacting]
     Active Substance: PENTOXIFYLLINE
     Indication: COMPLEX REGIONAL PAIN SYNDROME
     Route: 065
  31. KETAMINE [Interacting]
     Active Substance: KETAMINE
     Indication: COMPLEX REGIONAL PAIN SYNDROME
     Route: 042
  32. PREDNISONE. [Interacting]
     Active Substance: PREDNISONE
     Indication: COMPLEX REGIONAL PAIN SYNDROME
     Dosage: 1 EVERY 24 HOURS
     Route: 065
  33. PREDNISONE. [Interacting]
     Active Substance: PREDNISONE
     Indication: COMPLEX REGIONAL PAIN SYNDROME
     Dosage: 1 EVERY 24 HOURS
     Route: 065
  34. IBUDILAST [Interacting]
     Active Substance: IBUDILAST
     Indication: COMPLEX REGIONAL PAIN SYNDROME
     Route: 065
  35. RIBOFLAVIN [Interacting]
     Active Substance: RIBOFLAVIN
     Indication: COMPLEX REGIONAL PAIN SYNDROME
     Route: 065
  36. ASCORBIC ACID. [Interacting]
     Active Substance: ASCORBIC ACID
     Indication: COMPLEX REGIONAL PAIN SYNDROME
     Route: 065
  37. EZETIMIBE. [Concomitant]
     Active Substance: EZETIMIBE
     Indication: HYPERLIPIDAEMIA
     Route: 065
  38. LIDOCAINE. [Interacting]
     Active Substance: LIDOCAINE
     Indication: COMPLEX REGIONAL PAIN SYNDROME
     Route: 061
  39. PREDNISONE. [Interacting]
     Active Substance: PREDNISONE
     Indication: COMPLEX REGIONAL PAIN SYNDROME
     Dosage: 1 EVERY 24 HOURS
     Route: 065
  40. TRAZODONE [Concomitant]
     Active Substance: TRAZODONE HYDROCHLORIDE
     Indication: INSOMNIA
     Route: 065

REACTIONS (21)
  - Impaired quality of life [Recovered/Resolved]
  - Weight increased [Recovered/Resolved]
  - Fatigue [Recovered/Resolved]
  - Inhibitory drug interaction [Unknown]
  - Insomnia [Recovered/Resolved]
  - Poor quality sleep [Recovered/Resolved]
  - Herpes zoster [Recovered/Resolved]
  - Infection susceptibility increased [Recovered/Resolved]
  - Cataract [Recovered/Resolved]
  - Cellulitis [Recovered/Resolved]
  - Glucose tolerance impaired [Recovered/Resolved]
  - Oral herpes [Recovered/Resolved]
  - Skin disorder [Recovered/Resolved]
  - Bone density decreased [Recovered/Resolved]
  - Body tinea [Recovered/Resolved]
  - Contusion [Recovered/Resolved]
  - Drug ineffective [Unknown]
  - Purpura [Recovered/Resolved]
  - Hyperlipidaemia [Recovered/Resolved]
  - Hypertension [Recovered/Resolved]
  - Impaired work ability [Recovered/Resolved]
